FAERS Safety Report 7913694-0 (Version None)
Quarter: 2011Q4

REPORT INFORMATION
  Report Type: 
  Country: None (occurrence: None)
  Receive Date: 20111110
  Receipt Date: 20111026
  Transmission Date: 20120403
  Serious: Yes (Hospitalization, Other)
  Sender: FDA-Public Use
  Company Number: DSJ-2011-14655

PATIENT
  Age: 7 Decade
  Sex: Female

DRUGS (11)
  1. BROMAZEPAM [Concomitant]
  2. INDAPAMIDE [Concomitant]
  3. HUMAN INSULIN [Concomitant]
  4. SODIUM PICOSULPHATE/CASSIA SENNA/POLYGONUM PUNCTATUM/COLLINSONIA CANAD [Concomitant]
  5. FIBRINOLYSIN/DEOXYRIBONUCLEASE/CHLORAMPHENICOL [Concomitant]
  6. PANTOPRAZOLE [Concomitant]
  7. AMLODIPINE BESYLATE AND OLMESARTAN MEDOXOMIL [Suspect]
     Indication: HYPERTENSION
     Dosage: 20.5 MG (1 IN 1 D), PER ORAL; 40/5 MG (1 IN 1 D), PER ORAL
     Route: 048
     Dates: start: 20090101, end: 20100101
  8. AMLODIPINE BESYLATE AND OLMESARTAN MEDOXOMIL [Suspect]
     Indication: HYPERTENSION
     Dosage: 20.5 MG (1 IN 1 D), PER ORAL; 40/5 MG (1 IN 1 D), PER ORAL
     Route: 048
     Dates: start: 20100101
  9. DOMPERIDONE [Concomitant]
  10. CALCIUM CARBONATE/VITAMIN D (COLECALCIFEROL, CALCIUM CARBONATE) [Concomitant]
  11. RIFAMYCIN [Concomitant]

REACTIONS (8)
  - HEADACHE [None]
  - FALL [None]
  - ASTHENIA [None]
  - VENOUS THROMBOSIS [None]
  - DRUG INEFFECTIVE [None]
  - PAIN [None]
  - INTRAOCULAR PRESSURE INCREASED [None]
  - CHILLS [None]
